FAERS Safety Report 5280578-9 (Version None)
Quarter: 2007Q1

REPORT INFORMATION
  Report Type: 
  Country: None (occurrence: None)
  Receive Date: 20070329
  Receipt Date: 20070322
  Transmission Date: 20070707
  Serious: Yes (Hospitalization)
  Sender: FDA-Public Use
  Company Number: US-AMGEN-US216378

PATIENT
  Sex: Male

DRUGS (1)
  1. KINERET [Suspect]
     Indication: DRUG USE FOR UNKNOWN INDICATION
     Route: 058
     Dates: start: 20050701

REACTIONS (7)
  - CHILLS [None]
  - DIARRHOEA [None]
  - PAIN MANAGEMENT [None]
  - PHLEBITIS [None]
  - PYREXIA [None]
  - SPINAL COLUMN STENOSIS [None]
  - VOMITING [None]
